FAERS Safety Report 17339326 (Version 3)
Quarter: 2022Q2

REPORT INFORMATION
  Report Type: Spontaneous
  Country: US (occurrence: US)
  Receive Date: 20200129
  Receipt Date: 20220624
  Transmission Date: 20220721
  Serious: No
  Sender: FDA-Public Use
  Company Number: US-PFIZER INC-2019537981

PATIENT
  Age: 80 Year
  Sex: Female

DRUGS (1)
  1. PREMARIN [Suspect]
     Active Substance: ESTROGENS, CONJUGATED
     Dosage: UNK, AS NEEDED [USE SMALL AMOUNT ON LABIA DAILY]
     Route: 067

REACTIONS (7)
  - Off label use [Unknown]
  - Product administered at inappropriate site [Unknown]
  - Product use issue [Unknown]
  - Malaise [Unknown]
  - Fatigue [Unknown]
  - Cardiac disorder [Unknown]
  - Abdominal discomfort [Unknown]
